FAERS Safety Report 4349239-4 (Version None)
Quarter: 2004Q2

REPORT INFORMATION
  Report Type: 
  Country: None (occurrence: None)
  Receive Date: 20040415
  Receipt Date: 20040210
  Transmission Date: 20050107
  Serious: Yes (Other)
  Sender: FDA-Public Use
  Company Number: 200410030BBE

PATIENT
  Age: 22 Year
  Sex: Male
  Weight: 73.1 kg

DRUGS (3)
  1. KOGENATE [Suspect]
     Dosage: INTRAVENOUS
     Route: 042
  2. KOGENATE [Suspect]
     Dosage: INTRAVENOUS
  3. KOGENATE [Suspect]
     Dosage: INTRAVENOUS
     Route: 042

REACTIONS (3)
  - DIZZINESS [None]
  - HEART RATE INCREASED [None]
  - HYPERSENSITIVITY [None]
